FAERS Safety Report 16137238 (Version 1)
Quarter: 2019Q1

REPORT INFORMATION
  Report Type: Report from Study
  Country: US (occurrence: US)
  Receive Date: 20190330
  Receipt Date: 20190330
  Transmission Date: 20190418
  Serious: Yes (Hospitalization)
  Sender: FDA-Public Use
  Company Number: US-CELGENEUS-USA-20190307745

PATIENT
  Sex: Female
  Weight: 86 kg

DRUGS (2)
  1. AZACITIDINE. [Suspect]
     Active Substance: AZACITIDINE
     Indication: ACUTE MYELOID LEUKAEMIA
     Route: 058
     Dates: end: 20170508
  2. AZACITIDINE. [Suspect]
     Active Substance: AZACITIDINE
     Dosage: 60 MILLIGRAM/SQ. METER
     Route: 058
     Dates: start: 20181213

REACTIONS (3)
  - Haemorrhagic anaemia [Recovered/Resolved]
  - Ankle fracture [Not Recovered/Not Resolved]
  - Hypotension [Recovered/Resolved]
